FAERS Safety Report 8564036 (Version 3)
Quarter: 2012Q4

REPORT INFORMATION
  Report Type: 
  Country: US (occurrence: US)
  Receive Date: 20120516
  Receipt Date: 20121010
  Transmission Date: 20130627
  Serious: Yes (Other)
  Sender: FDA-Public Use
  Company Number: US-PFIZER INC-2012118316

PATIENT
  Age: 82 Year
  Sex: Female
  Weight: 58.96 kg

DRUGS (3)
  1. SUTENT [Suspect]
     Indication: HEPATIC NEOPLASM
     Dosage: 50 mg, 1x/day
     Route: 048
     Dates: start: 20120304
  2. SUTENT [Suspect]
     Indication: CARCINOID TUMOUR OF THE GASTROINTESTINAL TRACT
     Dosage: 50 mg, UNK
     Route: 048
     Dates: start: 20120224
  3. GLIMEPIRIDE [Concomitant]
     Indication: DIABETES MELLITUS
     Dosage: UNK

REACTIONS (1)
  - Hypertension [Recovering/Resolving]
